FAERS Safety Report 13646899 (Version 1)
Quarter: 2017Q2

REPORT INFORMATION
  Report Type: Spontaneous
  Country: IN (occurrence: IN)
  Receive Date: 20170613
  Receipt Date: 20170613
  Transmission Date: 20170830
  Serious: Yes (Death, Other)
  Sender: FDA-Public Use
  Company Number: PHHY2017IN084854

PATIENT
  Age: 45 Year
  Sex: Male

DRUGS (1)
  1. CARBAMAZEPINE. [Suspect]
     Active Substance: CARBAMAZEPINE
     Indication: BIPOLAR DISORDER
     Route: 065

REACTIONS (10)
  - Retinal exudates [Unknown]
  - Skin plaque [Unknown]
  - Staphylococcal sepsis [Unknown]
  - Rash maculo-papular [Unknown]
  - Scab [Unknown]
  - Ulcer [Unknown]
  - Toxic epidermal necrolysis [Unknown]
  - Multiple organ dysfunction syndrome [Fatal]
  - Oral mucosa erosion [Unknown]
  - Septic encephalopathy [Unknown]
